FAERS Safety Report 7605185-1 (Version None)
Quarter: 2011Q3

REPORT INFORMATION
  Report Type: 
  Country: None (occurrence: None)
  Receive Date: 20110705
  Receipt Date: 20110617
  Transmission Date: 20111222
  Serious: Yes (Other)
  Sender: FDA-Public Use
  Company Number: 2011MA007713

PATIENT
  Age: 68 Year
  Sex: Male

DRUGS (1)
  1. PROPYLTHIOURACIL TAB [Suspect]
     Indication: HYPERTHYROIDISM
     Dosage: 200 MG, QD

REACTIONS (4)
  - DRUG INEFFECTIVE [None]
  - DEAFNESS [None]
  - DIZZINESS [None]
  - TINNITUS [None]
